FAERS Safety Report 21071013 (Version 1)
Quarter: 2022Q3

REPORT INFORMATION
  Report Type: Spontaneous
  Country: US (occurrence: None)
  Receive Date: 20220712
  Receipt Date: 20220712
  Transmission Date: 20221027
  Serious: Yes (Hospitalization)
  Sender: FDA-Public Use
  Company Number: None

PATIENT
  Age: 66 Year
  Sex: Male
  Weight: 114.36 kg

DRUGS (2)
  1. NIVOLUMAB [Suspect]
     Active Substance: NIVOLUMAB
     Dates: end: 20220616
  2. IPILIMUMAB [Suspect]
     Active Substance: IPILIMUMAB
     Dates: end: 20211222

REACTIONS (4)
  - Loss of consciousness [None]
  - Nausea [None]
  - Vomiting [None]
  - Blood sodium decreased [None]

NARRATIVE: CASE EVENT DATE: 20220627
